FAERS Safety Report 9586546 (Version 1)
Quarter: 2013Q3

REPORT INFORMATION
  Report Type: Spontaneous
  Country: CA (occurrence: None)
  Receive Date: 20130926
  Receipt Date: 20130926
  Transmission Date: 20140515
  Serious: Yes (Hospitalization, Other)
  Sender: FDA-Public Use
  Company Number: 2013-01399

PATIENT
  Age: 5 Year
  Sex: Female

DRUGS (1)
  1. VALPROATE (UNKNOWN) [Suspect]
     Indication: FEBRILE CONVULSION
     Dosage: 750MG (250MG, 3 IN 1 D)

REACTIONS (3)
  - Pancreatitis acute [None]
  - Xanthomatosis [None]
  - Diabetes mellitus [None]
